FAERS Safety Report 4480282-0 (Version None)
Quarter: 2004Q3

REPORT INFORMATION
  Report Type: 
  Country: None (occurrence: None)
  Receive Date: 20040923
  Receipt Date: 20040707
  Transmission Date: 20050211
  Serious: No
  Sender: FDA-Public Use
  Company Number: USA040566616

PATIENT
  Age: 92 Year
  Sex: Female
  Weight: 49 kg

DRUGS (1)
  1. FORTEO [Suspect]
     Indication: OSTEOPOROSIS
     Dosage: 20 UG DAY
     Dates: start: 20040312

REACTIONS (5)
  - CONFUSIONAL STATE [None]
  - DIZZINESS [None]
  - HYPERSOMNIA [None]
  - HYPOTENSION [None]
  - NAUSEA [None]
